FAERS Safety Report 6827235-2 (Version None)
Quarter: 2010Q3

REPORT INFORMATION
  Report Type: 
  Country: None (occurrence: None)
  Receive Date: 20100709
  Receipt Date: 20100628
  Transmission Date: 20110219
  Serious: Yes (Hospitalization)
  Sender: FDA-Public Use
  Company Number: US-CELGENEUS-163-20785-10062870

PATIENT
  Sex: Female

DRUGS (1)
  1. THALOMID [Suspect]
     Indication: LICHEN PLANUS
     Route: 048
     Dates: start: 20100401, end: 20100601

REACTIONS (2)
  - FRACTURE [None]
  - PELVIC FRACTURE [None]
